FAERS Safety Report 4721722-9 (Version None)
Quarter: 2005Q3

REPORT INFORMATION
  Report Type: 
  Country: None (occurrence: None)
  Receive Date: 20050721
  Receipt Date: 20050316
  Transmission Date: 20060218
  Serious: No
  Sender: FDA-Public Use
  Company Number: US-BRISTOL-MYERS SQUIBB COMPANY-12899779

PATIENT
  Age: 77 Year
  Sex: Female
  Weight: 75 kg

DRUGS (6)
  1. COUMADIN [Suspect]
     Indication: ATRIAL FIBRILLATION
     Dosage: ALTERNATING 5 MG DAILY ON MON, WED, AND FRIDAY AND 2.5 MG ON TUE, THURS, SAT + SUN.
     Route: 048
     Dates: start: 20030101
  2. SYNTHROID [Concomitant]
  3. ZETIA [Concomitant]
  4. LASIX [Concomitant]
  5. ATACAND [Concomitant]
  6. PACERONE [Concomitant]

REACTIONS (1)
  - METRORRHAGIA [None]
